FAERS Safety Report 14686360 (Version 3)
Quarter: 2022Q3

REPORT INFORMATION
  Report Type: Report from Study
  Country: US (occurrence: US)
  Receive Date: 20180327
  Receipt Date: 20220921
  Transmission Date: 20221027
  Serious: Yes (Hospitalization)
  Sender: FDA-Public Use
  Company Number: US-SHIRE-US201811764

PATIENT
  Age: 58 Year
  Sex: Female

DRUGS (1)
  1. HUMAN IMMUNOGLOBULIN G\HYALURONIDASE RECOMBINANT HUMAN [Suspect]
     Active Substance: HUMAN IMMUNOGLOBULIN G\HYALURONIDASE RECOMBINANT HUMAN
     Indication: Primary immunodeficiency syndrome
     Dosage: 7.5 GRAM, 1/WEEK
     Route: 065

REACTIONS (4)
  - Immunoglobulins decreased [Unknown]
  - Illness [Unknown]
  - Fatigue [Unknown]
  - Bronchitis [Unknown]

NARRATIVE: CASE EVENT DATE: 20180323
